FAERS Safety Report 5231612-3 (Version None)
Quarter: 2007Q1

REPORT INFORMATION
  Report Type: 
  Country: None (occurrence: None)
  Receive Date: 20070202
  Receipt Date: 20070129
  Transmission Date: 20070707
  Serious: Yes (Hospitalization)
  Sender: FDA-Public Use
  Company Number: 2006SP007550

PATIENT
  Age: 53 Year
  Sex: Male
  Weight: 97.6 kg

DRUGS (11)
  1. TEMODAR [Suspect]
     Indication: GLIOBLASTOMA MULTIFORME
     Dosage: 75 MG/M2;QD;PO
     Route: 048
     Dates: start: 20060913, end: 20061024
  2. DECADRON [Concomitant]
  3. KEPPRA [Concomitant]
  4. LANTUS [Concomitant]
  5. NOVOLOG [Concomitant]
  6. ASPIRIN [Concomitant]
  7. BENAZEPRIL HYDROCHLORIDE [Concomitant]
  8. HYDROCHLOROTHIAZIDE [Concomitant]
  9. PREVACID [Concomitant]
  10. ZOCOR [Concomitant]
  11. RADIATION THERAPY [Concomitant]

REACTIONS (1)
  - ISCHAEMIC STROKE [None]
